FAERS Safety Report 21239452 (Version 2)
Quarter: 2022Q3

REPORT INFORMATION
  Report Type: Spontaneous
  Country: US (occurrence: US)
  Receive Date: 20220822
  Receipt Date: 20220826
  Transmission Date: 20221026
  Serious: No
  Sender: FDA-Public Use
  Company Number: US-NOVARTISTESTPH-NVSC2022US186057

PATIENT
  Sex: Female

DRUGS (1)
  1. LEQVIO [Suspect]
     Active Substance: INCLISIRAN SODIUM
     Indication: Product used for unknown indication
     Dosage: UNK (THIS WAS THE FIRST AND ONLY DOSE INJECTED THUS FAR)
     Route: 058

REACTIONS (3)
  - Diarrhoea [Unknown]
  - Dehydration [Unknown]
  - Drug intolerance [Unknown]
